FAERS Safety Report 8836778 (Version 1)
Quarter: 2012Q4

REPORT INFORMATION
  Report Type: Spontaneous
  Country: US (occurrence: None)
  Receive Date: 20121010
  Receipt Date: 20121010
  Transmission Date: 20130627
  Serious: Yes (Disabling, Other)
  Sender: FDA-Public Use
  Company Number: ADR-2012321115

PATIENT
  Age: 51 Year
  Sex: Female
  Weight: 52.62 kg

DRUGS (3)
  1. GABAPENTIN [Suspect]
     Indication: FIBROMYALGIA
     Dosage: 011
     Route: 048
     Dates: start: 2011
  2. DILTIAZEM [Concomitant]
  3. CLONOPIN [Concomitant]

REACTIONS (4)
  - Fibromyalgia [None]
  - Condition aggravated [None]
  - Chronic obstructive pulmonary disease [None]
  - Spinal osteoarthritis [None]
